FAERS Safety Report 9803865 (Version 1)
Quarter: 2014Q1

REPORT INFORMATION
  Report Type: Spontaneous
  Country: IT (occurrence: None)
  Receive Date: 20140103
  Receipt Date: 20140103
  Transmission Date: 20141002
  Serious: Yes (Other)
  Sender: FDA-Public Use
  Company Number: INT_00357_2014

PATIENT
  Age: 53 Year
  Sex: Female

DRUGS (1)
  1. CEFTRIAXON (CEFTRIAXON) (NOT SPECIFIED) [Suspect]
     Indication: ANTIBIOTIC PROPHYLAXIS
     Route: 002
     Dates: start: 20131114, end: 20131114

REACTIONS (2)
  - Anaphylactic shock [None]
  - Dyspnoea [None]
